FAERS Safety Report 8719510 (Version 2)
Quarter: 2012Q4

REPORT INFORMATION
  Report Type: 
  Country: DE (occurrence: DE)
  Receive Date: 20120813
  Receipt Date: 20120914
  Transmission Date: 20130627
  Serious: Yes (Other)
  Sender: FDA-Public Use
  Company Number: DE-MILLENNIUM PHARMACEUTICALS, INC.-2012-05485

PATIENT

DRUGS (3)
  1. VELCADE [Suspect]
     Indication: MULTIPLE MYELOMA
     Dosage: 2.3 mg, UNK
     Route: 042
     Dates: start: 20120716
  2. MELPHALAN [Concomitant]
     Indication: MULTIPLE MYELOMA
     Dosage: 14 mg, UNK
     Route: 048
     Dates: start: 20120716, end: 20120719
  3. DECORTIN [Concomitant]
     Indication: MULTIPLE MYELOMA
     Dosage: 120 mg, UNK
     Route: 048
     Dates: start: 20120716, end: 20120719

REACTIONS (3)
  - Retinal detachment [Recovered/Resolved with Sequelae]
  - Retinopathy proliferative [Recovered/Resolved with Sequelae]
  - Iris disorder [Recovered/Resolved with Sequelae]
